FAERS Safety Report 4698467-7 (Version None)
Quarter: 2005Q2

REPORT INFORMATION
  Report Type: 
  Country: None (occurrence: None)
  Receive Date: 20050621
  Receipt Date: 20050606
  Transmission Date: 20051028
  Serious: Yes (Life-Threatening, Hospitalization)
  Sender: FDA-Public Use
  Company Number: GBS050617585

PATIENT
  Age: 71 Year
  Sex: Male

DRUGS (4)
  1. DOBUTAMINE HCL [Suspect]
     Indication: CARDIAC STRESS TEST
     Dosage: 0.97 MG
     Dates: start: 20050503, end: 20050503
  2. RANITIDINE [Concomitant]
  3. AZATHIOPRINE [Concomitant]
  4. PREDNISOLONE [Concomitant]

REACTIONS (3)
  - ATRIOVENTRICULAR BLOCK COMPLETE [None]
  - BLOOD PRESSURE DECREASED [None]
  - SINUS BRADYCARDIA [None]
